FAERS Safety Report 24980886 (Version 1)
Quarter: 2025Q1

REPORT INFORMATION
  Report Type: Spontaneous
  Country: US (occurrence: None)
  Receive Date: 20250215
  Receipt Date: 20250215
  Transmission Date: 20250409
  Serious: No
  Sender: FDA-CTU
  Company Number: None

PATIENT
  Age: 67 Year
  Sex: Male
  Weight: 75.75 kg

DRUGS (10)
  1. CABOTEGRAVIR [Suspect]
     Active Substance: CABOTEGRAVIR
     Indication: Prophylaxis against HIV infection
     Dosage: FREQUENCY : MONTHLY;?
     Route: 030
     Dates: start: 20250123
  2. FINASTERIDE [Concomitant]
     Active Substance: FINASTERIDE
  3. ASPIRIN [Concomitant]
     Active Substance: ASPIRIN
  4. QUETIAPINE [Concomitant]
     Active Substance: QUETIAPINE
  5. ROSUVASTATIN [Concomitant]
     Active Substance: ROSUVASTATIN
  6. BISACODYL [Concomitant]
     Active Substance: BISACODYL
  7. clonazeparn [Concomitant]
  8. GABAPENTIN [Concomitant]
     Active Substance: GABAPENTIN
  9. HYDROXYZINE [Concomitant]
     Active Substance: HYDROXYZINE HYDROCHLORIDE
  10. carboxymethylcellulose 0.05% lubricant eye drops [Concomitant]

REACTIONS (1)
  - Headache [None]

NARRATIVE: CASE EVENT DATE: 20250114
